FAERS Safety Report 9933914 (Version 2)
Quarter: 2014Q1

REPORT INFORMATION
  Report Type: Report from Study
  Country: US (occurrence: US)
  Receive Date: 20140228
  Receipt Date: 20140228
  Transmission Date: 20141002
  Serious: No
  Sender: FDA-Public Use
  Company Number: US-MYLANLABS-2013S1019486

PATIENT
  Age: 15 Year
  Sex: Male
  Weight: 87.09 kg

DRUGS (4)
  1. AMNESTEEM CAPSULES [Suspect]
     Indication: ACNE
     Dates: start: 20130701
  2. AMNESTEEM CAPSULES [Suspect]
     Indication: ACNE
     Dates: end: 20130827
  3. ADDERALL [Concomitant]
  4. PROZAC [Concomitant]
     Dates: start: 201306, end: 201307

REACTIONS (2)
  - Hallucination [Not Recovered/Not Resolved]
  - Chest pain [Not Recovered/Not Resolved]
